FAERS Safety Report 19984558 (Version 2)
Quarter: 2021Q4

REPORT INFORMATION
  Report Type: Report from Study
  Country: CN (occurrence: CN)
  Receive Date: 20211021
  Receipt Date: 20211221
  Transmission Date: 20220303
  Serious: Yes (Life-Threatening, Hospitalization)
  Sender: FDA-Public Use
  Company Number: CN-PFIZER INC-202101334748

PATIENT
  Age: 64 Year
  Sex: Female
  Weight: 53 kg

DRUGS (6)
  1. PACLITAXEL [Suspect]
     Active Substance: PACLITAXEL
     Indication: Lung squamous cell carcinoma stage III
     Dosage: 175 MG/M2 (252MG), EVERY 3 WEEKS, INTRAVENOUS INFUSION
     Route: 042
     Dates: start: 20210731, end: 20211001
  2. INVESTIGATIONAL PRODUCT [Suspect]
     Active Substance: INVESTIGATIONAL PRODUCT
     Indication: Lung squamous cell carcinoma stage III
     Dosage: UNK, EVERY 3 WEEKS
     Route: 042
     Dates: start: 20210730
  3. INVESTIGATIONAL PRODUCT [Suspect]
     Active Substance: INVESTIGATIONAL PRODUCT
     Dosage: UNK, EVERY 3 WEEKS
     Route: 042
     Dates: start: 20210820
  4. INVESTIGATIONAL PRODUCT [Suspect]
     Active Substance: INVESTIGATIONAL PRODUCT
     Dosage: UNK, EVERY 3 WEEKS
     Route: 042
     Dates: start: 20210911
  5. INVESTIGATIONAL PRODUCT [Suspect]
     Active Substance: INVESTIGATIONAL PRODUCT
     Dosage: UNK, EVERY 3 WEEKS
     Route: 042
     Dates: start: 20210930
  6. CARBOPLATIN [Suspect]
     Active Substance: CARBOPLATIN
     Indication: Lung squamous cell carcinoma stage III
     Dosage: 500 MG (AUC5), EVERY 3 WEEKS, INTRAVENOUS INFUSION
     Route: 042
     Dates: start: 20210731, end: 20211001

REACTIONS (1)
  - Cardiotoxicity [Recovered/Resolved]

NARRATIVE: CASE EVENT DATE: 20211001
